FAERS Safety Report 11980559 (Version 1)
Quarter: 2016Q1

REPORT INFORMATION
  Report Type: Spontaneous
  Country: DE (occurrence: DE)
  Receive Date: 20160129
  Receipt Date: 20160129
  Transmission Date: 20160526
  Serious: Yes (Other)
  Sender: FDA-Public Use
  Company Number: DE-BRISTOL-MYERS SQUIBB COMPANY-BMS-2014-008157

PATIENT
  Age: 30 Year
  Sex: Female

DRUGS (2)
  1. QUETIAPINE [Suspect]
     Active Substance: QUETIAPINE
     Indication: SLEEP DISORDER
     Dosage: 50 MG, QD
     Route: 048
     Dates: end: 201402
  2. ABILIFY [Suspect]
     Active Substance: ARIPIPRAZOLE
     Indication: MENTAL DISORDER
     Dosage: 10 MG, QD
     Route: 048
     Dates: start: 201304, end: 201402

REACTIONS (3)
  - Off label use [Unknown]
  - Caesarean section [Unknown]
  - Pregnancy with contraceptive device [Unknown]

NARRATIVE: CASE EVENT DATE: 20140911
